FAERS Safety Report 10158837 (Version 3)
Quarter: 2015Q2

REPORT INFORMATION
  Report Type: Spontaneous
  Country: US (occurrence: US)
  Receive Date: 20140508
  Receipt Date: 20150526
  Transmission Date: 20150821
  Serious: No
  Sender: FDA-Public Use
  Company Number: US-BIOGENIDEC-2014BI038958

PATIENT
  Age: 59 Year
  Sex: Female

DRUGS (8)
  1. ZANTAC [Concomitant]
     Active Substance: RANITIDINE HYDROCHLORIDE
  2. BENTYL [Concomitant]
     Active Substance: DICYCLOMINE HYDROCHLORIDE
  3. TRAMADOL HCL [Concomitant]
     Active Substance: TRAMADOL HYDROCHLORIDE
  4. LIPITOR [Concomitant]
     Active Substance: ATORVASTATIN CALCIUM
  5. ZOFRAN [Concomitant]
     Active Substance: ONDANSETRON HYDROCHLORIDE
  6. TECFIDERA [Suspect]
     Active Substance: DIMETHYL FUMARATE
     Indication: MULTIPLE SCLEROSIS
     Route: 048
     Dates: start: 20140129
  7. ESTRACE [Concomitant]
     Active Substance: ESTRADIOL
  8. LEVSIN [Concomitant]
     Active Substance: HYOSCYAMINE SULFATE

REACTIONS (7)
  - Nuclear magnetic resonance imaging abnormal [Unknown]
  - Trichorrhexis [Unknown]
  - Skin odour abnormal [Unknown]
  - Feeling hot [Unknown]
  - Flushing [Not Recovered/Not Resolved]
  - Hair disorder [Unknown]
  - Abdominal discomfort [Not Recovered/Not Resolved]
